FAERS Safety Report 7423780-X (Version None)
Quarter: 2011Q2

REPORT INFORMATION
  Report Type: 
  Country: None (occurrence: None)
  Receive Date: 20110419
  Receipt Date: 20110413
  Transmission Date: 20111010
  Serious: Yes (Hospitalization)
  Sender: FDA-Public Use
  Company Number: US-B.I. PHARMACEUTICALS,INC./RIDGEFIELD-2011-BP-02668BP

PATIENT
  Age: 72 Year
  Sex: Female

DRUGS (11)
  1. GLIPIZIDE [Concomitant]
     Indication: DIABETES MELLITUS
  2. PRADAXA [Suspect]
     Indication: CEREBROVASCULAR ACCIDENT PROPHYLAXIS
  3. ALPRAZOLAM [Concomitant]
  4. METFORMIN HCL [Concomitant]
  5. DIGOXIN [Concomitant]
  6. LOVASTATIN [Concomitant]
  7. CITALOPRAM HYDROBROMIDE [Concomitant]
  8. RYTHMOL [Concomitant]
  9. MIRTAZAPIN [Concomitant]
  10. PRADAXA [Suspect]
     Indication: ATRIAL FIBRILLATION
     Dosage: 300 MG
     Route: 048
     Dates: start: 20110127, end: 20110202
  11. LISINOPRIL [Concomitant]

REACTIONS (4)
  - DIARRHOEA HAEMORRHAGIC [None]
  - DIZZINESS [None]
  - DIARRHOEA [None]
  - RECTAL HAEMORRHAGE [None]
